FAERS Safety Report 6792723-4 (Version None)
Quarter: 2010Q2

REPORT INFORMATION
  Report Type: 
  Country: None (occurrence: None)
  Receive Date: 20100624
  Receipt Date: 20080919
  Transmission Date: 20101027
  Serious: No
  Sender: FDA-Public Use
  Company Number: US-PFIZER INC-2008079243

PATIENT
  Sex: Female
  Weight: 56.818 kg

DRUGS (3)
  1. XALATAN [Suspect]
     Indication: GLAUCOMA
     Dates: start: 20080701
  2. TRAVATAN [Suspect]
     Indication: GLAUCOMA
     Dates: start: 20080701
  3. LUMIGAN [Concomitant]

REACTIONS (1)
  - EYE IRRITATION [None]
